FAERS Safety Report 9610899 (Version 2)
Quarter: 2013Q4

REPORT INFORMATION
  Report Type: Spontaneous
  Country: JP (occurrence: JP)
  Receive Date: 20131009
  Receipt Date: 20131030
  Transmission Date: 20140711
  Serious: Yes (Hospitalization)
  Sender: FDA-Public Use
  Company Number: JP-B.I. PHARMACEUTICALS,INC./RIDGEFIELD-2013-BI-31711NB

PATIENT
  Age: 60 Year
  Sex: Male

DRUGS (11)
  1. TRAZENTA [Suspect]
     Indication: DIABETES MELLITUS
     Dosage: 5 MG
     Route: 048
     Dates: start: 20130711
  2. BLOPRESS / CANDESARTAN CILEXETIL [Concomitant]
     Dosage: 2 MG
     Route: 065
  3. LEVOTHYROXINE NA / LEVOTHYROXINE SODIUM HYDRATE [Concomitant]
     Dosage: 37.5 MCG
     Route: 065
  4. JUSO / SODIUM BICARBONATE [Concomitant]
     Dosage: 1.5 G
     Route: 065
  5. KYUCAL / SPHERICAL ABSORBENT COAL [Concomitant]
     Dosage: 4 G
     Route: 065
  6. LIVALO / PITAVASTATIN CALCIUM [Concomitant]
     Dosage: 4 MG
     Route: 065
  7. SEPAMIT / NIFEDIPINE [Concomitant]
     Dosage: 40 MG
     Route: 065
  8. VEMAS / DIOCTYL SODIUM SULFOSUCCINATE_CASANTHRANOL [Concomitant]
     Dosage: DAILY DOSE: 4 DF
     Route: 065
  9. METHYCOBAL / MECOBALAMIN [Concomitant]
     Dosage: 1500 MCG
     Route: 065
  10. VOGLIBOSE OD / VOGLIBOSE [Concomitant]
     Dosage: 0.9 MG
     Route: 065
  11. ENTERONON-R / ANTIBIOTICS-RESISTANT LACTIC ACID BACTERIAE [Concomitant]
     Dosage: 3 G
     Route: 065

REACTIONS (2)
  - Pneumonia [Recovered/Resolved]
  - Upper respiratory tract inflammation [Not Recovered/Not Resolved]
